FAERS Safety Report 4522808-4 (Version None)
Quarter: 2004Q4

REPORT INFORMATION
  Report Type: 
  Country: None (occurrence: None)
  Receive Date: 20041209
  Receipt Date: 20041201
  Transmission Date: 20050328
  Serious: Yes (Death, Disabling)
  Sender: FDA-Public Use
  Company Number: JP-MERCK-0412USA00585

PATIENT
  Age: 65 Year
  Sex: Male

DRUGS (4)
  1. DECADRON [Suspect]
     Indication: PROSTATE CANCER
     Route: 048
     Dates: start: 20000901, end: 20010521
  2. PURSENNID [Concomitant]
     Indication: CONSTIPATION
     Route: 048
  3. LENDORMIN [Concomitant]
     Indication: INSOMNIA
     Route: 048
  4. [THERAPY UNSPECIFIED] [Concomitant]
     Indication: PROSTATE CANCER
     Route: 051

REACTIONS (5)
  - METASTASES TO BONE [None]
  - PROSTATE CANCER [None]
  - SPINAL COMPRESSION FRACTURE [None]
  - SPINAL CORD INJURY [None]
  - THORACIC VERTEBRAL FRACTURE [None]
